FAERS Safety Report 12752641 (Version 2)
Quarter: 2016Q4

REPORT INFORMATION
  Report Type: Spontaneous
  Country: CA (occurrence: CA)
  Receive Date: 20160916
  Receipt Date: 20161004
  Transmission Date: 20170207
  Serious: Yes (Death)
  Sender: FDA-Public Use
  Company Number: CA-BAXTER-2016BAX046857

PATIENT
  Age: 14 Month
  Sex: Female

DRUGS (16)
  1. METRONIDAZOLE 5MG/ML INJECTION [Suspect]
     Active Substance: METRONIDAZOLE
     Indication: INFECTIOUS COLITIS
     Route: 065
  2. ETOPOSIDE. [Suspect]
     Active Substance: ETOPOSIDE
     Indication: HISTIOCYTOSIS HAEMATOPHAGIC
     Dosage: DOSAGE FORM: NOT SPECIFIED
     Route: 065
  3. VANCOMYCIN [Suspect]
     Active Substance: VANCOMYCIN
     Indication: PYREXIA
     Dosage: DOSAGE FORM: NOT SPECIFIED
     Route: 065
  4. PIPERACILLIN/TAZOBACTAM [Suspect]
     Active Substance: PIPERACILLIN SODIUM\TAZOBACTAM SODIUM
     Indication: INFECTIOUS COLITIS
     Route: 065
  5. PROCYTOX (CYCLOPHOSPHAMIDE) 2000MG/VIAL [Suspect]
     Active Substance: CYCLOPHOSPHAMIDE
     Indication: NEUROBLASTOMA
     Route: 065
  6. MEROPENEM. [Suspect]
     Active Substance: MEROPENEM
     Indication: INFECTIOUS COLITIS
  7. FLUCONAZOLE INJECTION, USP, 400MG/200ML [Suspect]
     Active Substance: FLUCONAZOLE
     Indication: INFECTIOUS COLITIS
  8. CISPLATIN. [Suspect]
     Active Substance: CISPLATIN
     Indication: NEUROBLASTOMA
     Route: 065
  9. DOXORUBICIN [Suspect]
     Active Substance: DOXORUBICIN
     Indication: NEUROBLASTOMA
     Dosage: DOSAGE FORM: SOLUTION INTRAVENOUS
     Route: 042
  10. TENIPOSIDE. [Suspect]
     Active Substance: TENIPOSIDE
     Indication: NEUROBLASTOMA
     Route: 065
  11. MEROPENEM. [Suspect]
     Active Substance: MEROPENEM
     Indication: PYREXIA
     Dosage: DOSAGE FORM: POWDER FOR SOLUTION INTRAVENOUS
     Route: 065
  12. METHYLPREDNISOLONE. [Suspect]
     Active Substance: METHYLPREDNISOLONE
     Indication: HISTIOCYTOSIS HAEMATOPHAGIC
     Route: 065
  13. VANCOMYCIN [Suspect]
     Active Substance: VANCOMYCIN
     Indication: INFECTIOUS COLITIS
  14. CISPLATIN INJECTION MYLAN [Suspect]
     Active Substance: CISPLATIN
     Indication: NEUROBLASTOMA
     Dosage: DOSAGE FORM: SOLUTION FOR INTRAVENOUS
     Route: 065
  15. FLUCONAZOLE INJECTION, USP, 400MG/200ML [Suspect]
     Active Substance: FLUCONAZOLE
     Indication: PYREXIA
     Route: 065
  16. VINCRISTINE SULPHATE [Suspect]
     Active Substance: VINCRISTINE SULFATE
     Indication: NEUROBLASTOMA
     Route: 065

REACTIONS (7)
  - Off label use [Unknown]
  - Infectious colitis [Not Recovered/Not Resolved]
  - Product use issue [Unknown]
  - Pancytopenia [Fatal]
  - Histiocytosis haematophagic [Fatal]
  - Low cardiac output syndrome [Fatal]
  - Multiple organ dysfunction syndrome [Fatal]
